FAERS Safety Report 5209973-0 (Version None)
Quarter: 2006Q4

REPORT INFORMATION
  Report Type: 
  Country: None (occurrence: None)
  Receive Date: 20061128
  Receipt Date: 20060816
  Transmission Date: 20070319
  Serious: Yes (Hospitalization, Other)
  Sender: FDA-Public Use
  Company Number: 2003010449

PATIENT
  Age: 47 Year
  Sex: Female
  Weight: 82.5547 kg

DRUGS (7)
  1. TIKOSYN [Suspect]
     Indication: ATRIAL FIBRILLATION
     Dosage: 1000 MCG (BID), ORAL
     Route: 048
     Dates: start: 20030101
  2. INTERFERON [Concomitant]
  3. TOPROL-XL [Concomitant]
  4. COUMADIN [Concomitant]
  5. POTASSIUM ACETATE [Concomitant]
  6. TYLENOL [Concomitant]
  7. AXID [Concomitant]

REACTIONS (8)
  - ATRIAL FIBRILLATION [None]
  - DIZZINESS [None]
  - ELECTROCARDIOGRAM QT CORRECTED INTERVAL PROLONGED [None]
  - HEART RATE INCREASED [None]
  - HERPES ZOSTER [None]
  - HYPERHIDROSIS [None]
  - PAIN [None]
  - TINNITUS [None]
